FAERS Safety Report 4275094-7 (Version None)
Quarter: 2004Q1

REPORT INFORMATION
  Report Type: 
  Country: None (occurrence: None)
  Receive Date: 20040116
  Receipt Date: 20031201
  Transmission Date: 20041129
  Serious: Yes (Other)
  Sender: FDA-Public Use
  Company Number: M2003.6613

PATIENT
  Age: 28 Year
  Sex: Female

DRUGS (2)
  1. RIFAMPICIN (RIMACTANE) [Suspect]
     Indication: PULMONARY TUBERCULOSIS
     Dosage: 600MG
  2. ETHAMBUTOL HCL [Concomitant]

REACTIONS (3)
  - ANAEMIA [None]
  - GLOMERULONEPHRITIS [None]
  - RENAL FAILURE ACUTE [None]
